FAERS Safety Report 10044265 (Version 1)
Quarter: 2014Q1

REPORT INFORMATION
  Report Type: Spontaneous
  Country: US (occurrence: None)
  Receive Date: 20140306
  Receipt Date: 20140306
  Transmission Date: 20141002
  Serious: Yes (Hospitalization)
  Sender: FDA-Public Use
  Company Number: 163-21880-13070531

PATIENT
  Age: 77 Year
  Sex: Male
  Weight: 99.79 kg

DRUGS (4)
  1. REVLIMID [Suspect]
     Indication: PLASMA CELL MYELOMA
     Dosage: 1 IN 1 D
     Route: 048
     Dates: start: 201111
  2. FAMVIR (FAMCICLOVIR) [Concomitant]
  3. BACTRIM (BACTRIM) [Concomitant]
  4. VELCADE (BORTEZOMIB) [Concomitant]

REACTIONS (2)
  - Plasma cell myeloma recurrent [None]
  - Drug intolerance [None]
